FAERS Safety Report 6439892-3 (Version None)
Quarter: 2009Q4

REPORT INFORMATION
  Report Type: 
  Country: None (occurrence: None)
  Receive Date: 20091113
  Receipt Date: 20091109
  Transmission Date: 20100525
  Serious: No
  Sender: FDA-Public Use
  Company Number: US-ROXANE LABORATORIES, INC.-2009-RO-01146RO

PATIENT
  Sex: Female

DRUGS (2)
  1. PREDNISONE [Suspect]
  2. CODEINE [Suspect]

REACTIONS (4)
  - HEADACHE [None]
  - LIVER INJURY [None]
  - NAUSEA [None]
  - VOMITING [None]
